FAERS Safety Report 8647521 (Version 5)
Quarter: 2013Q1

REPORT INFORMATION
  Report Type: Report from Study
  Country: US (occurrence: US)
  Receive Date: 20120703
  Receipt Date: 20130108
  Transmission Date: 20140127
  Serious: Yes (Other)
  Sender: FDA-Public Use
  Company Number: US-SANOFI-AVENTIS-2012SA045418

PATIENT
  Age: 73 Year
  Sex: Male
  Weight: 82.7 kg

DRUGS (15)
  1. ELOXATIN [Suspect]
     Indication: COLORECTAL CANCER
     Dosage: DAYS 1, 15
     Route: 041
     Dates: start: 20060602, end: 20060602
  2. ELOXATIN [Suspect]
     Indication: COLORECTAL CANCER
     Dosage: DAYS 1, 15
     Route: 041
     Dates: start: 20061117, end: 20061117
  3. AVASTIN [Suspect]
     Indication: COLORECTAL CANCER
     Dosage: DAYS 1, 15
     Route: 042
     Dates: start: 20060602, end: 20060602
  4. AVASTIN [Suspect]
     Indication: COLORECTAL CANCER
     Dosage: DAYS 1, 15
     Route: 042
     Dates: start: 20061117, end: 20061117
  5. AVASTIN [Suspect]
     Indication: COLORECTAL CANCER
     Dosage: DAYS 1, 15   TOTAL 413 MG GIVEN THIS COURSE
     Route: 042
     Dates: start: 20061201, end: 20061201
  6. IRINOTECAN [Suspect]
     Indication: COLORECTAL CANCER
     Route: 042
     Dates: start: 20060602, end: 20060602
  7. IRINOTECAN [Suspect]
     Indication: COLORECTAL CANCER
     Route: 042
     Dates: start: 20061117, end: 20061117
  8. IRINOTECAN [Suspect]
     Indication: COLORECTAL CANCER
     Dosage: TOTAL 228 MG GIVEN THIS COURSE
     Route: 042
     Dates: start: 20061201, end: 20061201
  9. ATENOLOL [Concomitant]
  10. FERROUS SULFATE [Concomitant]
  11. TAMSULOSIN HYDROCHLORIDE [Concomitant]
  12. HYDROCHLOROTHIAZIDE [Concomitant]
  13. K-DUR [Concomitant]
  14. ATORVASTATIN [Concomitant]
  15. VASOTEC [Concomitant]

REACTIONS (2)
  - Peripheral motor neuropathy [Recovering/Resolving]
  - Peripheral sensory neuropathy [Unknown]
